FAERS Safety Report 5878194-0 (Version None)
Quarter: 2008Q3

REPORT INFORMATION
  Report Type: 
  Country: None (occurrence: None)
  Receive Date: 20080911
  Receipt Date: 20080905
  Transmission Date: 20090109
  Serious: Yes (Other)
  Sender: FDA-Public Use
  Company Number: PHHY2008BR20495

PATIENT
  Age: 20 Year
  Sex: Female

DRUGS (5)
  1. LEPONEX [Suspect]
     Indication: SCHIZOPHRENIA
     Dosage: 100 MG, UNK
     Route: 048
  2. LEPONEX [Suspect]
     Dosage: 200 MG, UNK
     Route: 048
  3. LEPONEX [Suspect]
     Dosage: 300 MG, UNK
     Route: 048
  4. QUETIAPINE [Concomitant]
     Dosage: 700 MG, IN TWO INTAKES
  5. QUETIAPINE [Concomitant]
     Dosage: 300 MG IN TWO INTAKES

REACTIONS (2)
  - LEUKOCYTOSIS [None]
  - NEUTROPHIL TOXIC GRANULATION PRESENT [None]
